FAERS Safety Report 4479987-7 (Version None)
Quarter: 2004Q3

REPORT INFORMATION
  Report Type: 
  Country: None (occurrence: None)
  Receive Date: 20040930
  Receipt Date: 20040603
  Transmission Date: 20050211
  Serious: Yes (Other)
  Sender: FDA-Public Use
  Company Number: 200410126BBE

PATIENT
  Age: 43 Year
  Sex: Female
  Weight: 66.6788 kg

DRUGS (9)
  1. GAMUNEX [Suspect]
     Indication: IMMUNODEFICIENCY COMMON VARIABLE
     Dosage: SEE IMAGE
     Route: 042
  2. NEULASTA [Concomitant]
  3. VITAMIN CAP [Concomitant]
  4. HORMONE REPLACEMENT THERAPY [Concomitant]
  5. VENTOLIN/00139501/ [Concomitant]
  6. ADVAIR DISKUS 100/50 [Concomitant]
  7. PANCREOLIPASE [Concomitant]
  8. VALTREX [Concomitant]
  9. ZITHROMAX [Concomitant]

REACTIONS (4)
  - ARTHRALGIA [None]
  - BACK PAIN [None]
  - CONDITION AGGRAVATED [None]
  - THERAPY NON-RESPONDER [None]
